FAERS Safety Report 11640931 (Version 1)
Quarter: 2015Q4

REPORT INFORMATION
  Report Type: Spontaneous
  Country: GB (occurrence: GB)
  Receive Date: 20151019
  Receipt Date: 20151019
  Transmission Date: 20160304
  Serious: Yes (Hospitalization)
  Sender: FDA-Public Use
  Company Number: GB-PFIZER INC-2015347313

PATIENT
  Age: 58 Year
  Sex: Female
  Weight: 42.5 kg

DRUGS (5)
  1. DEXAMETHASONE. [Concomitant]
     Active Substance: DEXAMETHASONE
     Dosage: UNK
  2. PARACETAMOL [Concomitant]
     Active Substance: ACETAMINOPHEN
     Dosage: UNK
  3. CODEINE [Concomitant]
     Active Substance: CODEINE
     Dosage: UNK
  4. LINEZOLID. [Suspect]
     Active Substance: LINEZOLID
     Indication: CENTRAL NERVOUS SYSTEM INFECTION
     Dosage: 600 MG, 2X/DAY
     Route: 048
     Dates: start: 20150914, end: 20150927
  5. RIFAMPICIN [Suspect]
     Active Substance: RIFAMPIN
     Indication: CENTRAL NERVOUS SYSTEM INFECTION
     Dosage: 600 MG, 2X/DAY
     Route: 048
     Dates: start: 20150914, end: 20150927

REACTIONS (2)
  - Jaundice [Recovering/Resolving]
  - Blood bilirubin increased [Recovering/Resolving]

NARRATIVE: CASE EVENT DATE: 20150926
